FAERS Safety Report 8928671 (Version 1)
Quarter: 2012Q4

REPORT INFORMATION
  Report Type: Spontaneous
  Country: US (occurrence: None)
  Receive Date: 20121126
  Receipt Date: 20121126
  Transmission Date: 20130627
  Serious: Yes (Hospitalization)
  Sender: FDA-Public Use
  Company Number: None

PATIENT
  Age: 32 Year
  Sex: Female
  Weight: 70.31 kg

DRUGS (1)
  1. NUVARING [Suspect]

REACTIONS (4)
  - Visual impairment [None]
  - Balance disorder [None]
  - Diplopia [None]
  - Ischaemic stroke [None]
